FAERS Safety Report 18653582 (Version 20)
Quarter: 2023Q1

REPORT INFORMATION
  Report Type: Report from Study
  Country: US (occurrence: US)
  Receive Date: 20201223
  Receipt Date: 20230315
  Transmission Date: 20230418
  Serious: Yes (Other)
  Sender: FDA-Public Use
  Company Number: US-TAKEDA-US202005399

PATIENT
  Sex: Male

DRUGS (3)
  1. HUMAN IMMUNOGLOBULIN G [Suspect]
     Active Substance: HUMAN IMMUNOGLOBULIN G
     Indication: Bruton^s agammaglobulinaemia
     Dosage: UNK
     Route: 042
  2. HUMAN IMMUNOGLOBULIN G [Suspect]
     Active Substance: HUMAN IMMUNOGLOBULIN G
     Indication: Hypogammaglobulinaemia
  3. COVID-19 VACCINE NOS [Suspect]
     Active Substance: COVID-19 VACCINE NOS
     Indication: COVID-19 immunisation
     Dosage: UNK
     Route: 065

REACTIONS (33)
  - Cataract [Unknown]
  - Gastroenteritis viral [Unknown]
  - Limb injury [Unknown]
  - Photopsia [Unknown]
  - Night blindness [Unknown]
  - Tooth disorder [Unknown]
  - Blood immunoglobulin G decreased [Unknown]
  - Illness [Unknown]
  - Dehydration [Unknown]
  - Glare [Unknown]
  - Sinus disorder [Not Recovered/Not Resolved]
  - Immunisation reaction [Unknown]
  - COVID-19 immunisation [Unknown]
  - Fall [Unknown]
  - Respiratory tract congestion [Unknown]
  - Oral disorder [Unknown]
  - Sinus congestion [Unknown]
  - Joint noise [Unknown]
  - Ear infection [Unknown]
  - Infection [Unknown]
  - Sinusitis [Recovering/Resolving]
  - Feeling abnormal [Unknown]
  - Injection site pain [Unknown]
  - Pain [Unknown]
  - Influenza like illness [Unknown]
  - Malaise [Unknown]
  - Back pain [Unknown]
  - Arthralgia [Unknown]
  - Pain in extremity [Unknown]
  - Fatigue [Unknown]
  - Headache [Unknown]
  - Oropharyngeal pain [Unknown]
  - Inappropriate schedule of product administration [Unknown]
